FAERS Safety Report 7638755-5 (Version None)
Quarter: 2011Q3

REPORT INFORMATION
  Report Type: 
  Country: None (occurrence: None)
  Receive Date: 20110727
  Receipt Date: 20110720
  Transmission Date: 20111222
  Serious: Yes (Death, Life-Threatening, Hospitalization)
  Sender: FDA-Public Use
  Company Number: US-ROCHE-782534

PATIENT
  Age: 75 Year
  Sex: Female
  Weight: 80.9 kg

DRUGS (2)
  1. PACLITAXEL [Suspect]
     Dosage: FREQUENCY: OVER 1 HOUR ON DAY 1, 8 AND 15. LAST DOSE PRIOR TO SAE: 12 APRIL 2011.
     Route: 042
     Dates: start: 20100511
  2. BEVACIZUMAB [Suspect]
     Dosage: FREQUENCY: OVER 30-90 MIN ON DAY 1 AND 15. LAST DOSE PRIOR TO SAE: 12 APRIL 2011
     Route: 042
     Dates: start: 20100511

REACTIONS (8)
  - ASCITES [None]
  - ANAEMIA [None]
  - DEVICE RELATED INFECTION [None]
  - DYSPNOEA [None]
  - INTRA-ABDOMINAL HAEMORRHAGE [None]
  - MULTI-ORGAN FAILURE [None]
  - PLEURAL EFFUSION [None]
  - SEPSIS [None]
